FAERS Safety Report 5930585-5 (Version None)
Quarter: 2008Q4

REPORT INFORMATION
  Report Type: 
  Country: None (occurrence: None)
  Receive Date: 20081021
  Receipt Date: 20081007
  Transmission Date: 20090506
  Serious: Yes (Hospitalization, Other)
  Sender: FDA-Public Use
  Company Number: JPI-P-001723

PATIENT
  Age: 38 Year
  Sex: Female

DRUGS (9)
  1. XYREM [Suspect]
     Indication: CATAPLEXY
     Dosage: 4.5 GM (2.25 GM, 2 IN 1 D) ,ORAL; 1 GM (1 GM, 1 IN 1 D) ,ORAL; 2 GM (1 GM, 2 IN 1 D) ,ORAL
     Route: 048
     Dates: start: 20070529, end: 20070702
  2. XYREM [Suspect]
     Indication: NARCOLEPSY
     Dosage: 4.5 GM (2.25 GM, 2 IN 1 D) ,ORAL; 1 GM (1 GM, 1 IN 1 D) ,ORAL; 2 GM (1 GM, 2 IN 1 D) ,ORAL
     Route: 048
     Dates: start: 20070529, end: 20070702
  3. XYREM [Suspect]
     Indication: CATAPLEXY
     Dosage: 4.5 GM (2.25 GM, 2 IN 1 D) ,ORAL; 1 GM (1 GM, 1 IN 1 D) ,ORAL; 2 GM (1 GM, 2 IN 1 D) ,ORAL
     Route: 048
     Dates: start: 20080701
  4. XYREM [Suspect]
     Indication: NARCOLEPSY
     Dosage: 4.5 GM (2.25 GM, 2 IN 1 D) ,ORAL; 1 GM (1 GM, 1 IN 1 D) ,ORAL; 2 GM (1 GM, 2 IN 1 D) ,ORAL
     Route: 048
     Dates: start: 20080701
  5. XYREM [Suspect]
     Indication: CATAPLEXY
     Dosage: 4.5 GM (2.25 GM, 2 IN 1 D) ,ORAL; 1 GM (1 GM, 1 IN 1 D) ,ORAL; 2 GM (1 GM, 2 IN 1 D) ,ORAL
     Route: 048
     Dates: start: 20080819
  6. XYREM [Suspect]
     Indication: NARCOLEPSY
     Dosage: 4.5 GM (2.25 GM, 2 IN 1 D) ,ORAL; 1 GM (1 GM, 1 IN 1 D) ,ORAL; 2 GM (1 GM, 2 IN 1 D) ,ORAL
     Route: 048
     Dates: start: 20080819
  7. MODAFINIL [Concomitant]
  8. TOPIRAMATE [Concomitant]
  9. CLOMIPRAMINE HCL [Concomitant]

REACTIONS (14)
  - ARTHRALGIA [None]
  - CONDITION AGGRAVATED [None]
  - CONFUSIONAL STATE [None]
  - DISORIENTATION [None]
  - EPILEPSY [None]
  - FALL [None]
  - FATIGUE [None]
  - HEADACHE [None]
  - INSOMNIA [None]
  - LOSS OF CONSCIOUSNESS [None]
  - MALAISE [None]
  - NAUSEA [None]
  - RETROGRADE AMNESIA [None]
  - VOMITING [None]
